FAERS Safety Report 14636696 (Version 1)
Quarter: 2018Q1

REPORT INFORMATION
  Report Type: Spontaneous
  Country: TR (occurrence: TR)
  Receive Date: 20180314
  Receipt Date: 20180314
  Transmission Date: 20180509
  Serious: Yes (Life-Threatening, Other)
  Sender: FDA-Public Use
  Company Number: PHHY2018TR043259

PATIENT
  Age: 30 Year
  Sex: Female
  Weight: 92 kg

DRUGS (2)
  1. PENICILLIN SANDOZ [Suspect]
     Active Substance: PENICILLIN
     Indication: PHARYNGEAL INFLAMMATION
     Dosage: 1000 MG, Q8H
     Route: 048
     Dates: start: 20180219
  2. PENICILLIN SANDOZ [Suspect]
     Active Substance: PENICILLIN
     Dosage: UNK (DOSE REDUCED)
     Route: 048

REACTIONS (2)
  - Menstrual disorder [Not Recovered/Not Resolved]
  - Menorrhagia [Not Recovered/Not Resolved]

NARRATIVE: CASE EVENT DATE: 20180219
